FAERS Safety Report 9542712 (Version 9)
Quarter: 2015Q3

REPORT INFORMATION
  Report Type: Report from Study
  Country: US (occurrence: US)
  Receive Date: 20130923
  Receipt Date: 20150715
  Transmission Date: 20151125
  Serious: Yes (Hospitalization, Other)
  Sender: FDA-Public Use
  Company Number: US-SANOFI-AVENTIS-2013SA092555

PATIENT
  Age: 62 Year
  Sex: Female

DRUGS (3)
  1. LYRICA [Concomitant]
     Active Substance: PREGABALIN
     Indication: PAIN
  2. PREDNISONE. [Concomitant]
     Active Substance: PREDNISONE
     Indication: MULTIPLE SCLEROSIS
  3. AUBAGIO [Suspect]
     Active Substance: TERIFLUNOMIDE
     Indication: MULTIPLE SCLEROSIS
     Route: 048
     Dates: start: 20130417

REACTIONS (11)
  - Asthenia [Unknown]
  - Aphasia [Not Recovered/Not Resolved]
  - Fall [Recovering/Resolving]
  - Decreased appetite [Unknown]
  - Pain [Unknown]
  - Abasia [Unknown]
  - Laziness [Not Recovered/Not Resolved]
  - Activities of daily living impaired [Unknown]
  - Pneumonia [Recovered/Resolved]
  - Memory impairment [Unknown]
  - Myocardial infarction [Recovered/Resolved]

NARRATIVE: CASE EVENT DATE: 2013
